FAERS Safety Report 10516560 (Version 1)
Quarter: 2014Q4

REPORT INFORMATION
  Report Type: Spontaneous
  Country: US (occurrence: None)
  Receive Date: 20141003
  Receipt Date: 20141003
  Transmission Date: 20150528
  Serious: Yes (Other)
  Sender: FDA-Public Use
  Company Number: 1362254

PATIENT
  Age: 46 Year
  Sex: Female

DRUGS (3)
  1. RIBASPHERE [Suspect]
     Active Substance: RIBAVIRIN
     Indication: CHRONIC HEPATITIS C
     Dosage: LAST DOSE PRIOR TO EVNET ON 03/MAR/2014 (400 MG, 2 IN 1 D), ORAL
     Route: 048
     Dates: start: 20140131
  2. SOVALDI [Suspect]
     Active Substance: SOFOSBUVIR
     Indication: CHRONIC HEPATITIS C
     Dosage: LAST DOSE PRIOR TO EVNET ON 03/MAR/2014 (400 MG, 1 IN 1 D),ORAL
     Route: 048
     Dates: start: 20140131
  3. PEGASYS [Suspect]
     Active Substance: PEGINTERFERON ALFA-2A
     Indication: CHRONIC HEPATITIS C
     Dosage: LAST DOSE PRIOR TO EVNET ON 05/MAR/2014 (135 UG, 1 IN 1 WK) SUBCUTANEOUS
     Route: 058
     Dates: start: 20140131

REACTIONS (7)
  - Cardiac disorder [None]
  - Increased appetite [None]
  - Somnolence [None]
  - Tremor [None]
  - Fatigue [None]
  - Injection site mass [None]
  - Dyspepsia [None]
